FAERS Safety Report 21539924 (Version 1)
Quarter: 2022Q4

REPORT INFORMATION
  Report Type: Spontaneous
  Country: US (occurrence: US)
  Receive Date: 20221102
  Receipt Date: 20221102
  Transmission Date: 20230113
  Serious: No
  Sender: FDA-Public Use
  Company Number: US-TEVA-2022-US-2816473

PATIENT
  Sex: Male

DRUGS (1)
  1. AUSTEDO [Suspect]
     Active Substance: DEUTETRABENAZINE
     Indication: Product used for unknown indication
     Dosage: 24 MILLIGRAM DAILY; TOOK FOR 3 WEEKS
     Route: 065
     Dates: start: 2022, end: 2022

REACTIONS (2)
  - Night sweats [Unknown]
  - Tongue movement disturbance [Unknown]
